FAERS Safety Report 5718737-0 (Version None)
Quarter: 2008Q2

REPORT INFORMATION
  Report Type: 
  Country: None (occurrence: None)
  Receive Date: 20080423
  Receipt Date: 20080410
  Transmission Date: 20081010
  Serious: Yes (Hospitalization, Other)
  Sender: FDA-Public Use
  Company Number: US020999

PATIENT
  Age: 58 Year
  Sex: Female

DRUGS (7)
  1. TRISENOX [Suspect]
     Indication: ACUTE PROMYELOCYTIC LEUKAEMIA
     Dosage: 8.85 MG QD INTRAVENOUS DRIP
     Route: 041
     Dates: start: 20070804, end: 20070807
  2. TRISENOX [Suspect]
     Indication: ACUTE PROMYELOCYTIC LEUKAEMIA
     Dosage: 8.85 MG QD INTRAVENOUS DRIP
     Route: 041
     Dates: start: 20070810, end: 20070811
  3. IDARUBICIN HCL [Concomitant]
  4. POTASSIUM SUPPLEMENT [Concomitant]
  5. GABEXATE MESILATE [Concomitant]
  6. CARPERITIDE [Concomitant]
  7. MICAFUNGIN SODIUM [Concomitant]

REACTIONS (14)
  - ACUTE PROMYELOCYTIC LEUKAEMIA DIFFERENTIATION SYNDROME [None]
  - ALANINE AMINOTRANSFERASE INCREASED [None]
  - ASPARTATE AMINOTRANSFERASE INCREASED [None]
  - BLOOD BILIRUBIN INCREASED [None]
  - BLOOD LACTATE DEHYDROGENASE INCREASED [None]
  - BLOOD POTASSIUM DECREASED [None]
  - BLOOD UREA INCREASED [None]
  - ELECTROCARDIOGRAM QT PROLONGED [None]
  - GAMMA-GLUTAMYLTRANSFERASE INCREASED [None]
  - HAEMOLYSIS [None]
  - HEPATIC FUNCTION ABNORMAL [None]
  - HYPERGLYCAEMIA [None]
  - RENAL IMPAIRMENT [None]
  - RETINOIC ACID SYNDROME [None]
